FAERS Safety Report 11173378 (Version 7)
Quarter: 2016Q4

REPORT INFORMATION
  Report Type: Report from Study
  Country: CA (occurrence: CA)
  Receive Date: 20150608
  Receipt Date: 20161123
  Transmission Date: 20170206
  Serious: Yes (Other)
  Sender: FDA-Public Use
  Company Number: CA-ROCHE-1586722

PATIENT
  Age: 21 Year
  Sex: Male

DRUGS (7)
  1. KINERET [Concomitant]
     Active Substance: ANAKINRA
  2. ACTEMRA [Suspect]
     Active Substance: TOCILIZUMAB
     Indication: JUVENILE IDIOPATHIC ARTHRITIS
     Route: 042
     Dates: start: 20150521
  3. ALENDRONATE [Concomitant]
     Active Substance: ALENDRONATE SODIUM
  4. METHOTREXATE. [Concomitant]
     Active Substance: METHOTREXATE
  5. FOLIC ACID. [Concomitant]
     Active Substance: FOLIC ACID
  6. PANTOLOC [Concomitant]
     Active Substance: PANTOPRAZOLE SODIUM
  7. CORTISONE [Concomitant]
     Active Substance: CORTISONE\HYDROCORTISONE

REACTIONS (11)
  - Viral infection [Recovered/Resolved]
  - Rash [Unknown]
  - Pain in extremity [Not Recovered/Not Resolved]
  - Wound complication [Not Recovered/Not Resolved]
  - Appendix disorder [Unknown]
  - Joint swelling [Unknown]
  - Migraine [Recovering/Resolving]
  - Obsessive-compulsive disorder [Unknown]
  - Pruritus [Unknown]
  - Disturbance in attention [Unknown]
  - Skin exfoliation [Unknown]

NARRATIVE: CASE EVENT DATE: 20150603
